FAERS Safety Report 5777195-0 (Version None)
Quarter: 2008Q2

REPORT INFORMATION
  Report Type: 
  Country: None (occurrence: None)
  Receive Date: 20080618
  Receipt Date: 20080606
  Transmission Date: 20081010
  Serious: Yes (Other)
  Sender: FDA-Public Use
  Company Number: JP-ELI_LILLY_AND_COMPANY-JP200804004064

PATIENT
  Age: 12 Year
  Sex: Female

DRUGS (1)
  1. HUMATROPE [Suspect]
     Route: 058

REACTIONS (1)
  - OSTEOCHONDROMA [None]
